FAERS Safety Report 4663148-2 (Version None)
Quarter: 2005Q2

REPORT INFORMATION
  Report Type: 
  Country: None (occurrence: None)
  Receive Date: 20050513
  Receipt Date: 20050428
  Transmission Date: 20051028
  Serious: Yes (Hospitalization)
  Sender: FDA-Public Use
  Company Number: US-2005-002746

PATIENT
  Age: 35 Year
  Sex: Male

DRUGS (26)
  1. BETASERON [Suspect]
     Indication: RELAPSING-REMITTING MULTIPLE SCLEROSIS
     Dosage: 250 ?, EVERY 2D, SUBCUTANEOUS
     Route: 058
     Dates: start: 20040514, end: 20050218
  2. CARBAMAZEPINE [Concomitant]
  3. NORTRIPTYLINE HCL [Concomitant]
  4. AMANTADINE HCL [Concomitant]
  5. ESCITOLOPRAM OXALATE (ESCITALOPRAM OXALATE) [Concomitant]
  6. LISINOPRIL [Concomitant]
  7. HYDROCHLOROTHIAZIDE W/IRBESARTAN (IRBESARTAN) [Concomitant]
  8. HYDROCHOROTHIAZIDE W/IRBESARTAN (IRBESARTAN) [Concomitant]
  9. PREDNISONE [Concomitant]
  10. FAMOTIDINE [Concomitant]
  11. DAYQUIL ^FOX^ (DEXTROMETHORPHAN HYDROBROMIED, PSEUDOEPHEDRINE HYDROCHL [Concomitant]
  12. NYQUIL (ETHANOL, DEXTROMETHORPHAN HYDROBROMIDE, EPHEDRINE SULFATE, DOX [Concomitant]
  13. ACETAMINOPHEN [Concomitant]
  14. BENADRYL ALLERGY (PHENYLALANINE, DIPHENHYDRAMINE HYDROCHLORIDE0 [Concomitant]
  15. GABAPENTIN [Concomitant]
  16. MULTIVITAMINS (PANTHENOL, RETINOL) [Concomitant]
  17. DIPHENHYDRAMINE HCL [Concomitant]
  18. CAFFEINE [Concomitant]
  19. ALPRAZOLAM [Concomitant]
  20. DARVOCET-N (DEXTROPROPOXYPHENE NAPSILATE) [Concomitant]
  21. CEPHALOSPORINS AND RELATED SUBSTANCES [Concomitant]
  22. IBUPROFEN [Concomitant]
  23. SIMVASTATIN [Concomitant]
  24. MODAFINIL [Concomitant]
  25. SILDENAFIL CITRATE [Concomitant]
  26. COPAXONE [Suspect]

REACTIONS (6)
  - DEPRESSION SUICIDAL [None]
  - DIARRHOEA [None]
  - MULTIPLE SCLEROSIS RELAPSE [None]
  - PANIC ATTACK [None]
  - URINARY RETENTION [None]
  - VIRAL INFECTION [None]
